FAERS Safety Report 6211397-4 (Version None)
Quarter: 2009Q2

REPORT INFORMATION
  Report Type: 
  Country: None (occurrence: None)
  Receive Date: 20090602
  Receipt Date: 20090522
  Transmission Date: 20091009
  Serious: Yes (Other)
  Sender: FDA-Public Use
  Company Number: CO-ELI_LILLY_AND_COMPANY-CO200905005233

PATIENT
  Age: 66 Year
  Sex: Male

DRUGS (9)
  1. BYETTA [Suspect]
     Dosage: 10 UG, 2/D
     Route: 058
     Dates: start: 20070801
  2. BYETTA [Suspect]
     Dosage: 10 UG, DAILY (1/D)
     Route: 058
  3. JANUVIA [Concomitant]
     Dosage: UNK, UNKNOWN
     Route: 048
  4. GLIBENCLAMIDE [Concomitant]
     Dosage: UNK, UNKNOWN
     Route: 048
  5. LEGALON [Concomitant]
     Dosage: UNK, UNKNOWN
     Route: 065
  6. VYTORIN [Concomitant]
     Dosage: UNK, UNKNOWN
     Route: 065
  7. ENALAPRIL MALEATE [Concomitant]
     Dosage: UNK, UNKNOWN
     Route: 065
  8. UROQUAD [Concomitant]
     Dosage: UNK, UNKNOWN
     Route: 065
  9. HYDROCHLOROTHIAZIDE [Concomitant]
     Dosage: UNK, UNKNOWN
     Route: 065

REACTIONS (2)
  - HIP ARTHROPLASTY [None]
  - HYPERGLYCAEMIA [None]
